FAERS Safety Report 16774292 (Version 1)
Quarter: 2019Q3

REPORT INFORMATION
  Report Type: Report from Study
  Country: None (occurrence: IT)
  Receive Date: 20190905
  Receipt Date: 20190905
  Transmission Date: 20191005
  Serious: Yes (Death)
  Sender: FDA-Public Use
  Company Number: IT-ABBVIE-19K-083-2910358-00

PATIENT
  Sex: Male

DRUGS (1)
  1. DUODOPA [Suspect]
     Active Substance: CARBIDOPA\LEVODOPA
     Indication: PARKINSON^S DISEASE
     Dosage: MD: 6+3?CR: 2,8?ED: 1??STRENGTH - 20 MG/ML 5 MG/ML
     Route: 050
     Dates: start: 20180612, end: 20190829

REACTIONS (1)
  - General physical health deterioration [Fatal]
